FAERS Safety Report 6216708-1 (Version None)
Quarter: 2009Q2

REPORT INFORMATION
  Report Type: 
  Country: None (occurrence: None)
  Receive Date: 20090605
  Receipt Date: 20090527
  Transmission Date: 20091009
  Serious: Yes (Other)
  Sender: FDA-Public Use
  Company Number: AU-JNJFOC-20070404952

PATIENT
  Sex: Female

DRUGS (4)
  1. TOPIRAMATE [Suspect]
     Indication: EPILEPSY
  2. CARBAMAZEPINE [Concomitant]
     Indication: EPILEPSY
  3. VITAMIN [Concomitant]
  4. FAMVIR [Concomitant]
     Indication: GENITAL HERPES

REACTIONS (2)
  - DRUG EXPOSURE DURING PREGNANCY [None]
  - GENITAL HERPES [None]
